FAERS Safety Report 9139302 (Version 1)
Quarter: 2013Q1

REPORT INFORMATION
  Report Type: Spontaneous
  Country: CA (occurrence: CA)
  Receive Date: 20130305
  Receipt Date: 20130305
  Transmission Date: 20140127
  Serious: Yes (Other)
  Sender: FDA-Public Use
  Company Number: PHHY2013CA020004

PATIENT
  Age: 57 Year
  Sex: Female

DRUGS (8)
  1. ESTALIS [Suspect]
     Dosage: UNK UKN, UNK
     Dates: start: 201210
  2. VITAMIN D [Concomitant]
     Dosage: 1000 IU, UNK
  3. CALCIUM [Concomitant]
     Dosage: 500 IU, UNK
  4. PANTOLOC ^BYK MADAUS^ [Concomitant]
     Dosage: 40 IU, UNK
  5. RESTORIL [Concomitant]
     Dosage: 15 IU, PRN
  6. ZANTAC [Concomitant]
     Dosage: 150 IU, PRN
  7. VENTOLIN                           /00942701/ [Concomitant]
     Dosage: 2 DF, PRN
  8. FLOVENT [Concomitant]
     Dosage: 250 UKN, BID

REACTIONS (4)
  - Anosmia [Not Recovered/Not Resolved]
  - Sensitisation [Not Recovered/Not Resolved]
  - Skin discolouration [Not Recovered/Not Resolved]
  - Breast discharge [Unknown]
